FAERS Safety Report 10469798 (Version 1)
Quarter: 2014Q3

REPORT INFORMATION
  Report Type: Spontaneous
  Country: US (occurrence: None)
  Receive Date: 20140922
  Receipt Date: 20140922
  Transmission Date: 20150326
  Serious: Yes (Disabling, Other)
  Sender: FDA-Public Use
  Company Number: None

PATIENT
  Age: 38 Year
  Sex: Female
  Weight: 58.51 kg

DRUGS (1)
  1. CIPRO [Suspect]
     Active Substance: CIPROFLOXACIN HYDROCHLORIDE
     Indication: EAR INFECTION
     Dosage: 1 PILL DAILY TWICE DAILY TAKEN BY MOUTH
     Route: 048
     Dates: start: 20140814, end: 20140817

REACTIONS (12)
  - Palpitations [None]
  - Decreased appetite [None]
  - Weight decreased [None]
  - Arthralgia [None]
  - Abasia [None]
  - Bedridden [None]
  - Tendon pain [None]
  - Insomnia [None]
  - Night sweats [None]
  - Pain [None]
  - Anxiety [None]
  - Asthenia [None]

NARRATIVE: CASE EVENT DATE: 20140808
